FAERS Safety Report 4501910-7 (Version None)
Quarter: 2004Q4

REPORT INFORMATION
  Report Type: 
  Country: None (occurrence: None)
  Receive Date: 20041109
  Receipt Date: 20041102
  Transmission Date: 20050328
  Serious: Yes (Hospitalization, Other)
  Sender: FDA-Public Use
  Company Number: 2004240096FR

PATIENT
  Age: 9 Year
  Sex: Female
  Weight: 31 kg

DRUGS (2)
  1. TRELSTAR DEPOT [Suspect]
     Indication: PRECOCIOUS PUBERTY
     Dosage: 3 MG/28 DAYS, INTRAMUSCULAR
     Route: 030
     Dates: start: 20030801
  2. SANMIGRAN (PIZOTIFEN MALEATE) [Concomitant]

REACTIONS (1)
  - BONE SARCOMA [None]
